FAERS Safety Report 20783210 (Version 2)
Quarter: 2023Q4

REPORT INFORMATION
  Report Type: Spontaneous
  Country: US (occurrence: US)
  Receive Date: 20220504
  Receipt Date: 20231121
  Transmission Date: 20240110
  Serious: Yes (Other)
  Sender: FDA-Public Use
  Company Number: US-MYLANLABS-2022M1032440

PATIENT
  Age: 54 Year
  Sex: Male
  Weight: 70.3 kg

DRUGS (11)
  1. VALSARTAN [Suspect]
     Active Substance: VALSARTAN
     Indication: Hypertension
     Dosage: 80 MILLIGRAM
     Route: 065
     Dates: start: 20170423, end: 201812
  2. VALSARTAN [Suspect]
     Active Substance: VALSARTAN
     Indication: Hypertension
     Dosage: 80 MILLIGRAM
     Route: 065
     Dates: start: 2015, end: 2018
  3. PROGRAF [Concomitant]
     Active Substance: TACROLIMUS
     Indication: Renal transplant
     Dosage: 1 MILLIGRAM
     Route: 065
     Dates: start: 2003
  4. NIFEDIPINE [Concomitant]
     Active Substance: NIFEDIPINE
     Indication: Hypertension
     Dosage: 90 MILLIGRAM
     Route: 065
     Dates: start: 2018
  5. MYFORTIC [Concomitant]
     Active Substance: MYCOPHENOLATE SODIUM
     Indication: Renal transplant
     Dosage: 360 MILLIGRAM
     Route: 065
     Dates: start: 2003
  6. LIPITOR [Concomitant]
     Active Substance: ATORVASTATIN CALCIUM
     Indication: Blood cholesterol abnormal
     Dosage: 10 MILLIGRAM
     Route: 065
     Dates: start: 2009, end: 2011
  7. LABETALOL HYDROCHLORIDE [Concomitant]
     Active Substance: LABETALOL HYDROCHLORIDE
     Indication: Hypertension
     Dosage: 300 MILLIGRAM
     Route: 065
     Dates: start: 2009, end: 2017
  8. QUINAPRIL [Concomitant]
     Active Substance: QUINAPRIL
     Indication: Hypertension
     Dosage: 5 MILLIGRAM
     Route: 065
     Dates: start: 2010, end: 2016
  9. RAPAMUNE [Concomitant]
     Active Substance: SIROLIMUS
     Indication: Renal transplant
     Dosage: 1 MILLIGRAM
     Route: 065
     Dates: start: 2012, end: 2016
  10. ATORVASTATIN [Concomitant]
     Active Substance: ATORVASTATIN
     Indication: Hypertension
     Dosage: 40 MILLIGRAM
     Route: 065
     Dates: start: 2012
  11. VITAMIN D [Concomitant]
     Active Substance: VITAMIN D NOS
     Indication: General physical condition abnormal
     Dosage: 1.25 MILLIGRAM
     Route: 065
     Dates: start: 2011

REACTIONS (1)
  - Prostate cancer stage III [Unknown]

NARRATIVE: CASE EVENT DATE: 20181001
